FAERS Safety Report 17146470 (Version 1)
Quarter: 2019Q4

REPORT INFORMATION
  Report Type: Report from Study
  Country: CA (occurrence: CA)
  Receive Date: 20191212
  Receipt Date: 20191212
  Transmission Date: 20200122
  Serious: Yes (Other)
  Sender: FDA-Public Use
  Company Number: NVSC2019CA066819

PATIENT
  Sex: Female

DRUGS (1)
  1. ACLASTA [Suspect]
     Active Substance: ZOLEDRONIC ACID
     Indication: OSTEOPOROSIS
     Dosage: 5 MG
     Route: 042
     Dates: start: 2018

REACTIONS (5)
  - Diverticulitis [Unknown]
  - Depression [Unknown]
  - Osteoporosis [Unknown]
  - Intestinal obstruction [Unknown]
  - Sleep-related eating disorder [Unknown]
